FAERS Safety Report 5034125-7 (Version None)
Quarter: 2006Q2

REPORT INFORMATION
  Report Type: 
  Country: None (occurrence: None)
  Receive Date: 20060626
  Receipt Date: 20060606
  Transmission Date: 20061013
  Serious: Yes (Death, Life-Threatening, Hospitalization, Other)
  Sender: FDA-Public Use
  Company Number: US-AVENTIS-200615030US

PATIENT
  Age: 61 Year
  Sex: Male

DRUGS (2)
  1. LOVENOX [Suspect]
     Indication: THROMBOSIS
     Dates: start: 20031001, end: 20040101
  2. COUMADIN [Suspect]
     Dosage: DOSE: UNKNOWN

REACTIONS (7)
  - CEREBRAL HAEMORRHAGE [None]
  - COMA [None]
  - DIPLOPIA [None]
  - EPISTAXIS [None]
  - PAIN [None]
  - PNEUMONIA [None]
  - RASH GENERALISED [None]
